FAERS Safety Report 8922975 (Version 2)
Quarter: 2013Q1

REPORT INFORMATION
  Report Type: Spontaneous
  Country: US (occurrence: US)
  Receive Date: 20121123
  Receipt Date: 20130104
  Transmission Date: 20140127
  Serious: No
  Sender: FDA-Public Use
  Company Number: US-PFIZER INC-2012292894

PATIENT
  Age: 82 Year
  Sex: Male

DRUGS (2)
  1. LYRICA [Suspect]
     Dosage: UNK, 1X/DAY
     Dates: start: 20121024, end: 2012
  2. LYRICA [Suspect]
     Dosage: UNK, 2X/DAY
     Dates: start: 2012

REACTIONS (1)
  - No adverse event [Unknown]
